FAERS Safety Report 15128162 (Version 1)
Quarter: 2018Q3

REPORT INFORMATION
  Report Type: Spontaneous
  Country: US (occurrence: US)
  Receive Date: 20180711
  Receipt Date: 20180711
  Transmission Date: 20181010
  Serious: No
  Sender: FDA-Public Use
  Company Number: US-SHIRE-US201824184

PATIENT
  Sex: Female
  Weight: 48.98 kg

DRUGS (1)
  1. VYVANSE [Suspect]
     Active Substance: LISDEXAMFETAMINE DIMESYLATE
     Indication: MULTIPLE SCLEROSIS
     Dosage: 50 MG, 1X/DAY:QD
     Route: 048
     Dates: start: 2015

REACTIONS (3)
  - Condition aggravated [Not Recovered/Not Resolved]
  - Amyloidosis senile [Unknown]
  - Off label use [Not Recovered/Not Resolved]

NARRATIVE: CASE EVENT DATE: 2015
